FAERS Safety Report 11043112 (Version 1)
Quarter: 2015Q2

REPORT INFORMATION
  Report Type: Spontaneous
  Country: CN (occurrence: CN)
  Receive Date: 20150417
  Receipt Date: 20150417
  Transmission Date: 20150821
  Serious: Yes (Other)
  Sender: FDA-Public Use
  Company Number: CN-BAYER-2015-135365

PATIENT
  Sex: Female

DRUGS (1)
  1. YASMIN [Suspect]
     Active Substance: DROSPIRENONE\ETHINYL ESTRADIOL
     Indication: POSTPARTUM UTERINE SUBINVOLUTION
     Dosage: UNK
     Route: 048
     Dates: start: 20150402

REACTIONS (6)
  - Post abortion haemorrhage [Recovered/Resolved]
  - Headache [None]
  - Nausea [None]
  - Adverse event [None]
  - Off label use [None]
  - Hypoaesthesia [None]

NARRATIVE: CASE EVENT DATE: 201504
